FAERS Safety Report 5721832-3 (Version None)
Quarter: 2008Q2

REPORT INFORMATION
  Report Type: 
  Country: None (occurrence: None)
  Receive Date: 20080429
  Receipt Date: 20070529
  Transmission Date: 20081010
  Serious: No
  Sender: FDA-Public Use
  Company Number: US-ASTRAZENECA-2007UW13050

PATIENT
  Age: 83 Year
  Sex: Female
  Weight: 68 kg

DRUGS (5)
  1. NEXIUM [Suspect]
     Indication: GASTROOESOPHAGEAL REFLUX DISEASE
     Route: 048
     Dates: start: 20070401
  2. NEXIUM [Suspect]
     Indication: VOMITING
     Route: 048
     Dates: start: 20070401
  3. PLAVIX [Concomitant]
  4. ASPIRIN [Concomitant]
  5. BLOOD PRESSURE MEDICINE [Concomitant]

REACTIONS (2)
  - PHARYNGOLARYNGEAL PAIN [None]
  - VOMITING [None]
